FAERS Safety Report 23275324 (Version 2)
Quarter: 2023Q4

REPORT INFORMATION
  Report Type: Spontaneous
  Country: ES (occurrence: ES)
  Receive Date: 20231208
  Receipt Date: 20231222
  Transmission Date: 20240109
  Serious: Yes (Life-Threatening, Hospitalization, Other)
  Sender: FDA-Public Use
  Company Number: None

PATIENT
  Age: 56 Year
  Sex: Female

DRUGS (12)
  1. MELOXICAM [Suspect]
     Active Substance: MELOXICAM
     Indication: Arthralgia
     Route: 048
     Dates: start: 20221004
  2. Atorvastatina 80 mg comprimido [Concomitant]
     Indication: Product used for unknown indication
  3. FERROUS SULFATE [Concomitant]
     Active Substance: FERROUS SULFATE
     Indication: Product used for unknown indication
  4. Alopurinol 300 mg 30 comprimidos [Concomitant]
     Indication: Product used for unknown indication
  5. LEVOTHYROXINE SODIUM [Concomitant]
     Active Substance: LEVOTHYROXINE SODIUM
     Indication: Product used for unknown indication
  6. CLOPIDOGREL BISULFATE [Concomitant]
     Active Substance: CLOPIDOGREL BISULFATE
     Indication: Product used for unknown indication
  7. TRINISPRAY 0,4 mg / 0,05 ml SOLUCION PARA PULVERIZACION SUBLINGUAL [Concomitant]
     Indication: Product used for unknown indication
  8. SYNJARDY 5 MG/1000 MG COMPRIMIDOS RECUBIERTOS CON PELICULA [Concomitant]
     Indication: Product used for unknown indication
  9. Fenofibrato 200 mg 30 c?psulas [Concomitant]
     Indication: Product used for unknown indication
  10. Indapamida 1,5 mg 30 comprimidos liberaci?n modificada [Concomitant]
     Indication: Product used for unknown indication
  11. Atenolol 50 mg comprimido [Concomitant]
     Indication: Product used for unknown indication
  12. ASPIRIN [Concomitant]
     Active Substance: ASPIRIN
     Indication: Product used for unknown indication

REACTIONS (3)
  - Acute coronary syndrome [Recovering/Resolving]
  - Chest pain [Recovering/Resolving]
  - Palpitations [Recovering/Resolving]

NARRATIVE: CASE EVENT DATE: 20231123
